FAERS Safety Report 4559050-7 (Version None)
Quarter: 2005Q1

REPORT INFORMATION
  Report Type: 
  Country: None (occurrence: None)
  Receive Date: 20050124
  Receipt Date: 20050111
  Transmission Date: 20050727
  Serious: Yes (Death, Hospitalization)
  Sender: FDA-Public Use
  Company Number: JP-JNJFOC-20050101243

PATIENT
  Sex: Male

DRUGS (13)
  1. INFLIXIMAB [Suspect]
     Route: 042
  2. INFLIXIMAB [Suspect]
     Route: 042
  3. INFLIXIMAB [Suspect]
     Route: 042
  4. INFLIXIMAB [Suspect]
     Indication: RHEUMATOID ARTHRITIS
     Route: 042
  5. RHEUMATREX [Concomitant]
     Indication: RHEUMATOID ARTHRITIS
     Route: 049
  6. PSL [Concomitant]
     Route: 049
  7. PREDONINE [Concomitant]
     Route: 049
  8. PREDONINE [Concomitant]
     Indication: ADRENOCORTICAL STEROID THERAPY
     Route: 049
  9. RIMATIL [Concomitant]
     Indication: RHEUMATOID ARTHRITIS
     Route: 049
  10. LOXONINE [Concomitant]
     Indication: ANTIINFLAMMATORY THERAPY
     Route: 049
  11. FOLIAMIN [Concomitant]
     Route: 049
  12. BONALON [Concomitant]
     Route: 049
  13. HYUMAKATO-R [Concomitant]
     Dosage: 32 U (300 U)
     Route: 058

REACTIONS (4)
  - BLOOD PRESSURE DECREASED [None]
  - DEPRESSED LEVEL OF CONSCIOUSNESS [None]
  - DISSEMINATED TUBERCULOSIS [None]
  - MULTI-ORGAN FAILURE [None]
